FAERS Safety Report 8951001 (Version 2)
Quarter: 2013Q1

REPORT INFORMATION
  Report Type: Spontaneous
  Country: US (occurrence: US)
  Receive Date: 20121207
  Receipt Date: 20130122
  Transmission Date: 20140127
  Serious: Yes (Other)
  Sender: FDA-Public Use
  Company Number: US-BAYER-2012-126868

PATIENT
  Age: 31 Year
  Sex: Female
  Weight: 65.31 kg

DRUGS (2)
  1. MIRENA [Suspect]
     Indication: CONTRACEPTION
     Dosage: 20 MCG/24HR, CONT
     Route: 015
     Dates: start: 20121004, end: 20121204
  2. ANALGESICS [Concomitant]
     Indication: INTRA-UTERINE CONTRACEPTIVE DEVICE INSERTION

REACTIONS (3)
  - Uterine perforation [Recovered/Resolved]
  - Procedural pain [Recovered/Resolved]
  - Procedural pain [Recovered/Resolved]
